FAERS Safety Report 5709667-9 (Version None)
Quarter: 2008Q2

REPORT INFORMATION
  Report Type: 
  Country: None (occurrence: None)
  Receive Date: 20080418
  Receipt Date: 20080410
  Transmission Date: 20081010
  Serious: Yes (Life-Threatening)
  Sender: FDA-Public Use
  Company Number: JP-SANOFI-SYNTHELABO-A01200802473

PATIENT
  Sex: Male

DRUGS (9)
  1. ZANTAC [Concomitant]
     Dosage: UNK
     Dates: start: 20070427
  2. AVASTIN [Suspect]
     Route: 042
     Dates: start: 20080118, end: 20080118
  3. CALCIUM LEVOFOLINATE [Suspect]
     Route: 042
     Dates: start: 20080118, end: 20080118
  4. FLUOROURACIL [Suspect]
     Route: 042
     Dates: start: 20080118, end: 20080118
  5. RHYTHMY [Concomitant]
     Dosage: UNK
     Dates: start: 20071012
  6. ELPLAT [Suspect]
     Indication: COLON CANCER METASTATIC
     Route: 042
     Dates: start: 20080118, end: 20080118
  7. LAC-B [Concomitant]
     Dosage: UNK
     Dates: start: 20080104
  8. MARZULENE [Concomitant]
     Dosage: UNK
     Dates: start: 20071214
  9. SELBEX [Concomitant]
     Dosage: UNK
     Dates: start: 20071214

REACTIONS (1)
  - SMALL INTESTINAL PERFORATION [None]
